FAERS Safety Report 21927060 (Version 1)
Quarter: 2023Q1

REPORT INFORMATION
  Report Type: Spontaneous
  Country: US (occurrence: US)
  Receive Date: 20230130
  Receipt Date: 20230130
  Transmission Date: 20230418
  Serious: No
  Sender: FDA-Public Use
  Company Number: US-SAREPTA THERAPEUTICS INC.-SRP2022-002680

PATIENT
  Age: 15 Year
  Sex: Male
  Weight: 72.562 kg

DRUGS (14)
  1. AMONDYS 45 [Suspect]
     Active Substance: CASIMERSEN
     Indication: Duchenne muscular dystrophy
     Dosage: 30 MILLIGRAM/KILOGRAM, WEEKLY
     Route: 042
     Dates: start: 202208, end: 20220929
  2. AMONDYS 45 [Suspect]
     Active Substance: CASIMERSEN
     Dosage: 30 MILLIGRAM/KILOGRAM, WEEKLY
     Route: 042
     Dates: start: 202204
  3. AMONDYS 45 [Suspect]
     Active Substance: CASIMERSEN
     Dosage: 38 MG/KG, WEEKLY FOR 2 DOSES
     Route: 042
     Dates: start: 202208, end: 202208
  4. TYLENOL [Concomitant]
     Active Substance: ACETAMINOPHEN
     Indication: Pyrexia
     Dosage: 650 MILLIGRAM, Q6H PRN
     Route: 048
     Dates: start: 20210908
  5. TYLENOL [Concomitant]
     Active Substance: ACETAMINOPHEN
     Indication: Pain
  6. ASPIRIN [Concomitant]
     Active Substance: ASPIRIN
     Indication: Product used for unknown indication
     Dosage: 81 MILLIGRAM, QD
     Route: 048
     Dates: start: 20220623
  7. TUMS EX [Concomitant]
     Active Substance: CALCIUM CARBONATE
     Indication: Product used for unknown indication
     Dosage: 750 MILLIGRAM, BID
     Route: 048
     Dates: start: 20210908
  8. DIGOXIN [Concomitant]
     Active Substance: DIGOXIN
     Indication: Product used for unknown indication
     Dosage: 125 MICROGRAM, BID
     Route: 048
     Dates: start: 20210908
  9. XOPENEX HFA [Concomitant]
     Active Substance: LEVALBUTEROL TARTRATE
     Indication: Wheezing
     Dosage: 45MCG/ACT, Q4H, PRN
     Dates: start: 20211126
  10. MELATONIN [Concomitant]
     Active Substance: MELATONIN
     Indication: Product used for unknown indication
     Dosage: 15 MILLIGRAM, QD
     Route: 048
     Dates: start: 20210929
  11. LOPRESSOR [Concomitant]
     Active Substance: METOPROLOL TARTRATE
     Indication: Product used for unknown indication
     Dosage: 25 MILLIGRAM
     Route: 048
     Dates: start: 20210908
  12. NYSTOP [Concomitant]
     Active Substance: NYSTATIN
     Indication: Skin irritation
     Dosage: UNK, PRN
     Route: 061
     Dates: start: 20210908
  13. SPIRONOLACTONE [Concomitant]
     Active Substance: SPIRONOLACTONE
     Indication: Product used for unknown indication
     Dosage: 25 MILLIGRAM, QD
     Route: 048
     Dates: start: 20210908
  14. DESITIN [ZINC OXIDE] [Concomitant]
     Indication: Skin irritation
     Dosage: UNK, PRN
     Route: 061
     Dates: start: 20210908

REACTIONS (2)
  - Renal disorder [Unknown]
  - Overdose [Unknown]

NARRATIVE: CASE EVENT DATE: 20220801
